FAERS Safety Report 21985189 (Version 5)
Quarter: 2023Q2

REPORT INFORMATION
  Report Type: Report from Study
  Country: CN (occurrence: CN)
  Receive Date: 20230213
  Receipt Date: 20230613
  Transmission Date: 20230722
  Serious: Yes (Hospitalization, Other)
  Sender: FDA-Public Use
  Company Number: CN-JNJFOC-20230209893

PATIENT
  Age: 63 Year
  Sex: Male
  Weight: 75.3 kg

DRUGS (10)
  1. AMIVANTAMAB [Suspect]
     Active Substance: AMIVANTAMAB
     Indication: Hepatocellular carcinoma
     Route: 042
     Dates: start: 20230102, end: 20230130
  2. HYDROCHLOROTHIAZIDE\IRBESARTAN [Concomitant]
     Active Substance: HYDROCHLOROTHIAZIDE\IRBESARTAN
     Indication: Hypertension
     Route: 048
     Dates: start: 20120101
  3. ENTECAVIR [Concomitant]
     Active Substance: ENTECAVIR
     Indication: Chronic hepatitis B
     Route: 048
     Dates: start: 20120101
  4. MUPIROCIN [Concomitant]
     Active Substance: MUPIROCIN
     Indication: Rash
     Route: 050
     Dates: start: 20230116
  5. CHLORAMPHENICOL [Concomitant]
     Active Substance: CHLORAMPHENICOL
     Indication: Rash
     Route: 050
     Dates: start: 20230116
  6. CHLORAMPHENICOL [Concomitant]
     Active Substance: CHLORAMPHENICOL
     Indication: Rash
  7. COMPOUND BETAMETHASONE [Concomitant]
     Indication: Rash
     Route: 050
     Dates: start: 20230116
  8. COMPOUND BETAMETHASONE [Concomitant]
     Indication: Rash
  9. URSODIOL [Concomitant]
     Active Substance: URSODIOL
     Indication: Prophylaxis
     Route: 048
     Dates: start: 20221210
  10. LECITHIN [Concomitant]
     Active Substance: LECITHIN
     Indication: Prophylaxis
     Route: 048
     Dates: start: 20230104

REACTIONS (1)
  - Ascites [Not Recovered/Not Resolved]

NARRATIVE: CASE EVENT DATE: 20230204
